FAERS Safety Report 7804199-6 (Version None)
Quarter: 2011Q4

REPORT INFORMATION
  Report Type: 
  Country: None (occurrence: None)
  Receive Date: 20111010
  Receipt Date: 20110926
  Transmission Date: 20120403
  Serious: Yes (Hospitalization)
  Sender: FDA-Public Use
  Company Number: US-SANOFI-AVENTIS-2010SA070779

PATIENT
  Age: 39 Year
  Sex: Male

DRUGS (12)
  1. LANTUS [Suspect]
     Dosage: DOSE:3800 UNIT(S)
     Route: 058
  2. LANTUS [Suspect]
     Indication: SUICIDE ATTEMPT
     Dosage: DOSE:3800 UNIT(S)
     Route: 058
  3. INSULIN LISPRO [Suspect]
     Dosage: DOSE: 25 U WITH MEALS DOSE:25 UNIT(S)
     Route: 058
  4. INSULIN LISPRO [Suspect]
     Dosage: DOSE:800 UNIT(S)
     Route: 058
  5. OMEPRAZOLE [Concomitant]
  6. ALBUTEROL [Concomitant]
     Dosage: DOSE: 3 ML EVERY 8 HOURS AS NEEDED
     Route: 055
  7. CETIRIZINE HCL [Concomitant]
  8. LANTUS [Suspect]
     Dosage: DOSE:50 UNIT(S)
     Route: 058
  9. INSULIN LISPRO [Suspect]
     Dosage: DOSE:800 UNIT(S)
     Route: 058
  10. LANTUS [Suspect]
     Dosage: DOSE:50 UNIT(S)
     Route: 058
  11. INSULIN LISPRO [Suspect]
     Indication: SUICIDE ATTEMPT
     Dosage: DOSE: 25 U WITH MEALS DOSE:25 UNIT(S)
     Route: 058
  12. AMLODIPINE BESYLATE AND BENAZEPRIL HCL [Concomitant]
     Dosage: DOSE: 5-20 MG DAILY.

REACTIONS (5)
  - INSULIN C-PEPTIDE DECREASED [None]
  - INTENTIONAL OVERDOSE [None]
  - HYPOGLYCAEMIA [None]
  - HYPOKALAEMIA [None]
  - SUICIDE ATTEMPT [None]
